FAERS Safety Report 8798603 (Version 1)
Quarter: 2012Q4

REPORT INFORMATION
  Report Type: 
  Country: US (occurrence: US)
  Receive Date: 20120917
  Receipt Date: 20120917
  Transmission Date: 20130627
  Serious: Yes (Other)
  Sender: FDA-Public Use
  Company Number: US-ELI_LILLY_AND_COMPANY-US201209000467

PATIENT
  Age: 61 Year
  Sex: Female
  Weight: 80.73 kg

DRUGS (10)
  1. BYDUREON [Suspect]
     Indication: TYPE 2 DIABETES MELLITUS
     Dosage: 2 mg, weekly (1/W)
     Route: 058
  2. METFORMIN [Concomitant]
     Indication: TYPE 2 DIABETES MELLITUS
     Dosage: 1000 mg, bid
     Route: 048
  3. GLIPIZIDE XL [Concomitant]
     Indication: TYPE 2 DIABETES MELLITUS
     Dosage: 2.5 mg, bid
     Route: 048
  4. JANUVIA [Concomitant]
     Indication: TYPE 2 DIABETES MELLITUS
     Dosage: 100 mg, qd
     Route: 048
  5. SYNTHROID [Concomitant]
     Dosage: 125 ug, each morning
     Route: 048
  6. SIMVASTATIN [Concomitant]
     Dosage: 40 mg, each evening
     Route: 048
  7. BENICAR [Concomitant]
     Dosage: 20 mg, each evening
     Route: 048
  8. METOPROLOL [Concomitant]
     Dosage: UNK, each evening
     Route: 048
  9. MUCINEX [Concomitant]
     Indication: SEASONAL ALLERGY
     Dosage: UNK
     Route: 048
  10. COQ10                                   /USA/ [Concomitant]
     Dosage: 100 mg, qd
     Route: 048

REACTIONS (9)
  - Pharyngeal oedema [Not Recovered/Not Resolved]
  - Vomiting [Unknown]
  - Nasal congestion [Recovering/Resolving]
  - Sinus headache [Recovered/Resolved]
  - Sinusitis [Recovering/Resolving]
  - Injection site swelling [Not Recovered/Not Resolved]
  - Injection site pruritus [Not Recovered/Not Resolved]
  - Headache [Recovered/Resolved]
  - Somnolence [Unknown]
